FAERS Safety Report 5238960-1 (Version None)
Quarter: 2007Q1

REPORT INFORMATION
  Report Type: 
  Country: None (occurrence: None)
  Receive Date: 20070215
  Receipt Date: 20070208
  Transmission Date: 20070707
  Serious: Yes (Disabling)
  Sender: FDA-Public Use
  Company Number: US-ALLERGAN-0607881US

PATIENT
  Sex: Female
  Weight: 54 kg

DRUGS (1)
  1. BOTOX [Suspect]
     Indication: MYOFASCIAL PAIN SYNDROME
     Dosage: 40 UNITS, SINGLE
     Route: 030
     Dates: start: 20060714, end: 20060714

REACTIONS (8)
  - INJECTION SITE REACTION [None]
  - MASTICATION DISORDER [None]
  - MUSCLE ATROPHY [None]
  - MUSCULAR WEAKNESS [None]
  - MYALGIA [None]
  - PAIN [None]
  - PARALYSIS [None]
  - SKIN DISORDER [None]
